FAERS Safety Report 7128672-1 (Version None)
Quarter: 2010Q4

REPORT INFORMATION
  Report Type: 
  Country: None (occurrence: None)
  Receive Date: 20101130
  Receipt Date: 20101118
  Transmission Date: 20110411
  Serious: Yes (Other)
  Sender: FDA-Public Use
  Company Number: US-ROCHE-722754

PATIENT
  Sex: Male
  Weight: 91.2 kg

DRUGS (9)
  1. ACCUTANE [Suspect]
     Indication: ACNE
     Route: 065
     Dates: start: 19940218, end: 19941129
  2. ACCUTANE [Suspect]
     Route: 065
     Dates: end: 19970401
  3. HYDROCHLOROTHIAZIDE [Concomitant]
     Dates: start: 19950101
  4. WELLBUTRIN [Concomitant]
  5. TRICOR [Concomitant]
  6. ALLOPURINOL [Concomitant]
     Dates: start: 19940101
  7. PREVACID [Concomitant]
  8. PENTASA [Concomitant]
  9. PRILOSEC [Concomitant]

REACTIONS (16)
  - ANAEMIA [None]
  - ARTHRALGIA [None]
  - BLOOD POTASSIUM DECREASED [None]
  - BLOOD PRESSURE INCREASED [None]
  - CROHN'S DISEASE [None]
  - DEPRESSION [None]
  - DIVERTICULUM INTESTINAL [None]
  - ERECTILE DYSFUNCTION [None]
  - GASTROINTESTINAL INJURY [None]
  - HAEMORRHOIDS [None]
  - INFLAMMATORY BOWEL DISEASE [None]
  - INTESTINAL HAEMORRHAGE [None]
  - LARYNGITIS [None]
  - OROPHARYNGEAL PAIN [None]
  - PHARYNGOESOPHAGEAL DIVERTICULUM [None]
  - TINNITUS [None]
